FAERS Safety Report 4527809-8 (Version None)
Quarter: 2004Q4

REPORT INFORMATION
  Report Type: 
  Country: None (occurrence: None)
  Receive Date: 20041215
  Receipt Date: 20041022
  Transmission Date: 20050328
  Serious: Yes (Death)
  Sender: FDA-Public Use
  Company Number: ES-JNJFOC-20041006997

PATIENT
  Age: 38 Year
  Sex: Male

DRUGS (4)
  1. RISPERDAL CONSTA [Suspect]
     Indication: SCHIZOPHRENIA
     Route: 030
  2. HALDOL [Suspect]
     Indication: SCHIZOPHRENIA
     Route: 065
  3. ZUCLOPENTIXOL [Concomitant]
     Indication: SCHIZOPHRENIA
     Route: 030
     Dates: start: 20040220
  4. BIPERIDENO [Concomitant]
     Route: 065
     Dates: start: 20031112

REACTIONS (1)
  - COMPLETED SUICIDE [None]
